FAERS Safety Report 9358396 (Version 2)
Quarter: 2013Q3

REPORT INFORMATION
  Report Type: Report from Study
  Country: US (occurrence: US)
  Receive Date: 20130620
  Receipt Date: 20130701
  Transmission Date: 20140515
  Serious: Yes (Hospitalization, Other)
  Sender: FDA-Public Use
  Company Number: PHEH2013US013262

PATIENT
  Sex: Male

DRUGS (2)
  1. GLEEVEC [Suspect]
     Indication: CHRONIC MYELOID LEUKAEMIA
     Dosage: 400 MG, DAILY
     Route: 048
     Dates: start: 200712
  2. PROCRIT [Concomitant]
     Dosage: UNK UKN, UNK

REACTIONS (4)
  - Obstruction gastric [Unknown]
  - Terminal state [Unknown]
  - Small intestine carcinoma [Unknown]
  - Second primary malignancy [Unknown]
